FAERS Safety Report 6168016-5 (Version None)
Quarter: 2009Q2

REPORT INFORMATION
  Report Type: 
  Country: None (occurrence: None)
  Receive Date: 20090427
  Receipt Date: 20090417
  Transmission Date: 20091009
  Serious: Yes (Other)
  Sender: FDA-Public Use
  Company Number: FR-ROCHE-612961

PATIENT
  Sex: Female
  Weight: 54 kg

DRUGS (6)
  1. BONIVA [Suspect]
     Indication: OSTEOPOROSIS
     Dosage: DOSAGE REPORTED AS: 150 MG/MO, DRUG DISCONTINUED
     Route: 048
     Dates: start: 20090201
  2. AVLOCARDYL [Concomitant]
     Dosage: DOSE REPORTED AS 1.75 TABLET, DRUG: AVLOCARDYL 40
     Route: 048
     Dates: start: 19990101
  3. OSSOPAN [Concomitant]
     Route: 048
     Dates: start: 19990101
  4. PROTHIADEN 25 [Concomitant]
     Route: 048
     Dates: start: 19990101
  5. PRAZEPAM [Concomitant]
     Dosage: DRUG: LYSANXIA 10
     Route: 048
     Dates: start: 19990101
  6. TERCIAN [Concomitant]
     Route: 048
     Dates: start: 19990101

REACTIONS (2)
  - HAEMOPTYSIS [None]
  - REGURGITATION [None]
